FAERS Safety Report 8828881 (Version 2)
Quarter: 2012Q4

REPORT INFORMATION
  Report Type: Report from Study
  Country: FR (occurrence: FR)
  Receive Date: 20121008
  Receipt Date: 20121105
  Transmission Date: 20130627
  Serious: Yes (Hospitalization, Other)
  Sender: FDA-Public Use
  Company Number: FR-ROCHE-1142766

PATIENT
  Age: 81 Year
  Sex: Male
  Weight: 62 kg

DRUGS (6)
  1. TENECTEPLASE [Suspect]
     Indication: ACUTE MYOCARDIAL INFARCTION
     Dosage: form of admin: LOI.
     Route: 042
     Dates: start: 20120701
  2. TENECTEPLASE [Suspect]
     Dosage: form of admin: LOI.
     Route: 040
     Dates: start: 20120701
  3. CLOPIDOGREL [Suspect]
     Indication: ACUTE MYOCARDIAL INFARCTION
     Route: 048
     Dates: start: 20120701
  4. ENOXAPARIN [Suspect]
     Indication: ACUTE MYOCARDIAL INFARCTION
     Route: 065
  5. ACETYLSALICYLIC ACID [Suspect]
     Indication: ACUTE MYOCARDIAL INFARCTION
     Dosage: drug reported as :acetyl salyclique; form as LOI.
     Route: 065
     Dates: start: 20120701
  6. ACETYLSALICYLIC ACID [Suspect]
     Route: 048
     Dates: start: 20120701

REACTIONS (1)
  - Haemoglobin decreased [Unknown]
